FAERS Safety Report 7300879-X (Version None)
Quarter: 2011Q1

REPORT INFORMATION
  Report Type: 
  Country: None (occurrence: None)
  Receive Date: 20110218
  Receipt Date: 20110210
  Transmission Date: 20110831
  Serious: Yes (Other)
  Sender: FDA-Public Use
  Company Number: PHHY2011CA01321

PATIENT
  Sex: Female

DRUGS (13)
  1. CALCIUM CARBONATE [Concomitant]
     Dosage: 250 MG, QD
  2. ATORVASTATIN [Concomitant]
     Dosage: 20 MG, QD
  3. FUROSEMIDE [Concomitant]
     Dosage: 40 MG, BID
  4. VENTOLIN [Concomitant]
     Dosage: 100 MG, PRN
  5. SENOKOT [Concomitant]
  6. DOCUSATE [Concomitant]
     Dosage: 100 MG, BID
  7. SPIRIVA [Concomitant]
     Dosage: 180 UG, QD
  8. DILTIAZEM [Concomitant]
     Dosage: 180 MG, QD
  9. COZAAR [Concomitant]
     Dosage: 50 MG, QD
  10. VITAMIN B-12 [Concomitant]
  11. ACLASTA [Suspect]
     Indication: OSTEOPOROSIS
     Dates: start: 20100118
  12. SYMBICORT [Concomitant]
     Dosage: 200 MG, BID
  13. VITAMIN D [Concomitant]

REACTIONS (3)
  - FALL [None]
  - LACERATION [None]
  - ACCIDENT [None]
